FAERS Safety Report 8592806-2 (Version None)
Quarter: 2012Q3

REPORT INFORMATION
  Report Type: 
  Country: None (occurrence: None)
  Receive Date: 20120814
  Receipt Date: 20120808
  Transmission Date: 20120928
  Serious: Yes (Hospitalization)
  Sender: FDA-Public Use
  Company Number: JP-PFIZER INC-2012128116

PATIENT
  Age: 83 Year
  Sex: Female

DRUGS (5)
  1. WARFARIN SODIUM [Interacting]
     Indication: ATRIAL FIBRILLATION
     Dosage: 1 MG, 1X/DAY
     Route: 048
     Dates: start: 20120509, end: 20120519
  2. ASPIRIN [Concomitant]
     Indication: ATRIAL FIBRILLATION
     Dosage: 100 MG, 1X/DAY
     Route: 048
     Dates: start: 20120509, end: 20120519
  3. AMOBANTES [Concomitant]
     Indication: SLEEP DISORDER
     Dosage: 7.5 MG, 1X/DAY
     Route: 048
  4. ZOSYN [Suspect]
     Indication: PNEUMONIA
     Dosage: 4.5 G, 3X/DAY
     Route: 041
     Dates: start: 20120509, end: 20120516
  5. TULOBUTEROL [Concomitant]
     Indication: PNEUMONIA
     Dosage: 2 MG, 1X/DAY

REACTIONS (3)
  - DRUG INTERACTION [None]
  - PROTHROMBIN TIME PROLONGED [None]
  - HAEMORRHAGIC DIATHESIS [None]
